FAERS Safety Report 6546028-7 (Version None)
Quarter: 2010Q1

REPORT INFORMATION
  Report Type: 
  Country: None (occurrence: None)
  Receive Date: 20100121
  Receipt Date: 20100121
  Transmission Date: 20100710
  Serious: No
  Sender: FDA-Public Use
  Company Number: None

PATIENT
  Age: 50 Year
  Sex: Male

DRUGS (1)
  1. HYDROMORPHONE HYDROCHLORIDE [Suspect]
     Indication: PAIN
     Dosage: 0.8 MG ONCE IV
     Route: 042

REACTIONS (3)
  - CARDIO-RESPIRATORY ARREST [None]
  - OXYGEN SATURATION DECREASED [None]
  - UNRESPONSIVE TO STIMULI [None]
